FAERS Safety Report 4827579-X (Version None)
Quarter: 2005Q4

REPORT INFORMATION
  Report Type: 
  Country: None (occurrence: None)
  Receive Date: 20051114
  Receipt Date: 20051101
  Transmission Date: 20060501
  Serious: Yes (Death, Hospitalization)
  Sender: FDA-Public Use
  Company Number: US-JNJFOC-20051101601

PATIENT
  Sex: Male
  Weight: 80.74 kg

DRUGS (6)
  1. TYLENOL (CAPLET) [Suspect]
     Route: 048
  2. TYLENOL (CAPLET) [Suspect]
     Indication: HEADACHE
     Dosage: 6 PER DAY, PO
     Route: 048
  3. EXTRA STRENGTH TYLENOL [Suspect]
     Indication: HEADACHE
     Route: 048
  4. EXTRA STRENGTH TYLENOL [Suspect]
     Indication: SLEEP DISORDER THERAPY
     Dosage: PRIOR TO 3/20/00, UP TO 35-40, PO
     Route: 048
  5. ALCOHOL [Suspect]
     Indication: DRUG USE FOR UNKNOWN INDICATION
     Dosage: ^BINGE DRINKING^
     Route: 048
  6. COCAINE [Suspect]
     Indication: DRUG USE FOR UNKNOWN INDICATION

REACTIONS (8)
  - BRAIN OEDEMA [None]
  - CARDIAC ARREST [None]
  - COAGULOPATHY [None]
  - DEATH [None]
  - HEPATIC FAILURE [None]
  - RENAL FAILURE [None]
  - UNEVALUABLE EVENT [None]
  - VOMITING [None]
